FAERS Safety Report 8835039 (Version 1)
Quarter: 2012Q4

REPORT INFORMATION
  Report Type: Report from Study
  Country: CA (occurrence: CA)
  Receive Date: 20121011
  Receipt Date: 20121011
  Transmission Date: 20130627
  Serious: Yes (Hospitalization)
  Sender: FDA-Public Use
  Company Number: CA-JNJFOC-20121001346

PATIENT
  Age: 75 None
  Sex: Female
  Weight: 52 kg

DRUGS (5)
  1. REMICADE [Suspect]
     Indication: CROHN^S DISEASE
     Route: 042
     Dates: start: 20120905
  2. CORTISONE [Concomitant]
     Route: 065
  3. ANTIDEPRESSANT [Concomitant]
     Route: 065
  4. ALL OTHER THERAPEUTICS [Concomitant]
     Indication: NEUROPATHY PERIPHERAL
     Route: 065
  5. MORPHINE [Concomitant]
     Indication: ABDOMINAL PAIN
     Route: 065

REACTIONS (3)
  - Fall [Unknown]
  - Confusional state [Unknown]
  - Hip fracture [Unknown]
